FAERS Safety Report 4906177-3 (Version None)
Quarter: 2006Q1

REPORT INFORMATION
  Report Type: 
  Country: None (occurrence: None)
  Receive Date: 20060207
  Receipt Date: 20060207
  Transmission Date: 20060701
  Serious: Yes (Hospitalization)
  Sender: FDA-Public Use
  Company Number: None

PATIENT
  Age: 72 Year
  Sex: Male
  Weight: 88.8 kg

DRUGS (7)
  1. OXYBUTYNIN CHLORIDE [Suspect]
     Indication: MICTURITION URGENCY
     Dosage: 5 MG BID
     Dates: start: 20051028, end: 20051103
  2. ASPIRIN [Concomitant]
  3. NITROGLYCERIN [Concomitant]
  4. LOVASTATIN [Concomitant]
  5. METOPROLOL TARTRATE [Concomitant]
  6. AMIODARONE HCL [Concomitant]
  7. OMEPRAZOLE [Concomitant]

REACTIONS (1)
  - PALPITATIONS [None]
